FAERS Safety Report 20113167 (Version 1)
Quarter: 2021Q4

REPORT INFORMATION
  Report Type: Spontaneous
  Country: US (occurrence: None)
  Receive Date: 20211124
  Receipt Date: 20211124
  Transmission Date: 20220303
  Serious: No
  Sender: FDA-Public Use
  Company Number: None

PATIENT
  Age: 45 Year
  Sex: Male

DRUGS (1)
  1. CABENUVA [Suspect]
     Active Substance: CABOTEGRAVIR\RILPIVIRINE
     Indication: HIV infection
     Dosage: FREQUENCY : ONCE;?
     Route: 030
     Dates: start: 20211110

REACTIONS (2)
  - Pruritus [None]
  - Injection site pain [None]

NARRATIVE: CASE EVENT DATE: 20211124
